FAERS Safety Report 19613235 (Version 1)
Quarter: 2021Q3

REPORT INFORMATION
  Report Type: Spontaneous
  Country: US (occurrence: US)
  Receive Date: 20210726
  Receipt Date: 20210726
  Transmission Date: 20211014
  Serious: No
  Sender: FDA-Public Use
  Company Number: None

PATIENT
  Age: 74 Year
  Sex: Male
  Weight: 85.5 kg

DRUGS (22)
  1. FUROSEMIDE. [Concomitant]
     Active Substance: FUROSEMIDE
  2. METFORMIN [Concomitant]
     Active Substance: METFORMIN HYDROCHLORIDE
  3. NITROGLYCERIN. [Concomitant]
     Active Substance: NITROGLYCERIN
  4. AZELASTINE. [Concomitant]
     Active Substance: AZELASTINE HYDROCHLORIDE
  5. TRIAMCINOLONE [Concomitant]
     Active Substance: TRIAMCINOLONE
  6. PAZEO [Concomitant]
     Active Substance: OLOPATADINE HYDROCHLORIDE
  7. OMEPRAZOLE. [Concomitant]
     Active Substance: OMEPRAZOLE
  8. EUCRISA [Concomitant]
     Active Substance: CRISABOROLE
  9. CETIRIZINE [Concomitant]
     Active Substance: CETIRIZINE HYDROCHLORIDE
  10. COENZYME Q10 [Concomitant]
     Active Substance: DIETARY SUPPLEMENT\UBIDECARENONE
  11. EASY TOUCH [Concomitant]
  12. XTANDI [Concomitant]
     Active Substance: ENZALUTAMIDE
  13. PRODIGY [Concomitant]
  14. LOVENOX [Concomitant]
     Active Substance: ENOXAPARIN SODIUM
  15. ERLEADA [Suspect]
     Active Substance: APALUTAMIDE
     Indication: PROSTATE CANCER
     Route: 048
  16. LISINOPRIL. [Concomitant]
     Active Substance: LISINOPRIL
  17. MYRBETRIQ [Concomitant]
     Active Substance: MIRABEGRON
  18. ATORVASTATIN [Concomitant]
     Active Substance: ATORVASTATIN
  19. CARVEDILOL. [Concomitant]
     Active Substance: CARVEDILOL
  20. DEXAMETHASONE. [Concomitant]
     Active Substance: DEXAMETHASONE
  21. MONTELUKAST [Concomitant]
     Active Substance: MONTELUKAST SODIUM
  22. POTASSIUM CHLORIDE. [Concomitant]
     Active Substance: POTASSIUM CHLORIDE

REACTIONS (2)
  - Prostatic specific antigen increased [None]
  - Disease progression [None]
